FAERS Safety Report 5302256-X (Version None)
Quarter: 2007Q2

REPORT INFORMATION
  Report Type: 
  Country: None (occurrence: None)
  Receive Date: 20070419
  Receipt Date: 20060412
  Transmission Date: 20071010
  Serious: No
  Sender: FDA-Public Use
  Company Number: US-GLAXOSMITHKLINE-A0602140A

PATIENT
  Sex: Female

DRUGS (3)
  1. ESKALITH CR [Suspect]
     Dosage: 450MG TWICE PER DAY
     Route: 048
  2. LITHIUM CARBONATE [Suspect]
     Dosage: 450MG TWICE PER DAY
     Route: 048
  3. NO CONCURRENT MEDICATION [Concomitant]

REACTIONS (3)
  - FEELING JITTERY [None]
  - MALAISE [None]
  - NERVOUSNESS [None]
